FAERS Safety Report 14551900 (Version 1)
Quarter: 2018Q1

REPORT INFORMATION
  Report Type: Spontaneous
  Country: US (occurrence: US)
  Receive Date: 20180220
  Receipt Date: 20180220
  Transmission Date: 20180509
  Serious: No
  Sender: FDA-Public Use
  Company Number: US-PFIZER INC-2018067381

PATIENT
  Age: 45 Year
  Sex: Male

DRUGS (1)
  1. BOSULIF [Suspect]
     Active Substance: BOSUTINIB MONOHYDRATE
     Dosage: 600 MG, 1X/DAY (QD)
     Route: 048

REACTIONS (1)
  - Tinea cruris [Unknown]

NARRATIVE: CASE EVENT DATE: 20180214
